FAERS Safety Report 25544128 (Version 1)
Quarter: 2025Q3

REPORT INFORMATION
  Report Type: Spontaneous
  Country: US (occurrence: US)
  Receive Date: 20250711
  Receipt Date: 20250711
  Transmission Date: 20251020
  Serious: Yes (Other)
  Sender: SANOFI AVENTIS
  Company Number: US-SA-2025SA196376

PATIENT
  Age: 44 Year
  Sex: Female

DRUGS (12)
  1. DUPIXENT [Suspect]
     Active Substance: DUPILUMAB
     Indication: Asthma
     Route: 058
     Dates: start: 20240903
  2. FLUTICASONE [Concomitant]
     Active Substance: FLUTICASONE
  3. PROGESTERONE [Concomitant]
     Active Substance: PROGESTERONE
  4. AZELASTINE [Concomitant]
     Active Substance: AZELASTINE
  5. AMITRIPTYLINE [Concomitant]
     Active Substance: AMITRIPTYLINE
  6. QUERCETIN [Concomitant]
     Active Substance: QUERCETIN
  7. SERTRALINE [Concomitant]
     Active Substance: SERTRALINE HYDROCHLORIDE
  8. FISH OIL [Concomitant]
     Active Substance: FISH OIL
  9. ESTRADIOL [Concomitant]
     Active Substance: ESTRADIOL
  10. GLYCINE [Concomitant]
     Active Substance: GLYCINE
  11. TRELEGY ELLIPTA [Concomitant]
     Active Substance: FLUTICASONE FUROATE\UMECLIDINIUM BROMIDE\VILANTEROL TRIFENATATE
  12. HYDROCORTISONE [Concomitant]
     Active Substance: HYDROCORTISONE

REACTIONS (1)
  - Epstein-Barr virus infection reactivation [Unknown]

NARRATIVE: CASE EVENT DATE: 20250710
